FAERS Safety Report 5573996-2 (Version None)
Quarter: 2007Q4

REPORT INFORMATION
  Report Type: 
  Country: None (occurrence: None)
  Receive Date: 20071226
  Receipt Date: 20071221
  Transmission Date: 20080405
  Serious: Yes (Hospitalization, Disabling, Other)
  Sender: FDA-Public Use
  Company Number: GB-MERCK-0709GBR00116

PATIENT
  Age: 50 Year
  Sex: Male
  Weight: 113 kg

DRUGS (6)
  1. ZOCOR [Suspect]
     Indication: HYPERCHOLESTEROLAEMIA
     Route: 048
     Dates: start: 20070814, end: 20071002
  2. CITALOPRAM [Concomitant]
     Indication: DEPRESSION
     Route: 065
     Dates: start: 20061011
  3. OMEPRAZOLE [Concomitant]
     Route: 065
     Dates: start: 20030206
  4. METOPROLOL TARTRATE [Concomitant]
     Route: 065
     Dates: start: 20020919
  5. ISOSORBIDE MONONITRATE [Concomitant]
     Route: 065
     Dates: start: 20070216
  6. NICORANDIL [Concomitant]
     Route: 065
     Dates: start: 20030206

REACTIONS (1)
  - TIBIA FRACTURE [None]
